FAERS Safety Report 4414689-4 (Version None)
Quarter: 2004Q3

REPORT INFORMATION
  Report Type: 
  Country: None (occurrence: None)
  Receive Date: 20040729
  Receipt Date: 20040720
  Transmission Date: 20050211
  Serious: Yes (Hospitalization)
  Sender: FDA-Public Use
  Company Number: 2004UW15084

PATIENT
  Age: 76 Year
  Sex: Female
  Weight: 95.2554 kg

DRUGS (7)
  1. SEROQUEL [Suspect]
     Indication: DEMENTIA
     Dosage: 400 MG DAILY PO
     Route: 048
     Dates: start: 20040717
  2. SEROQUEL [Suspect]
     Indication: DEMENTIA
     Dosage: 40 MG HS PO
     Route: 048
     Dates: start: 20040101
  3. SEROQUEL [Suspect]
     Indication: DEMENTIA
     Dosage: 50 MG BID PO
     Route: 048
     Dates: start: 20040715, end: 20040716
  4. EXELON [Concomitant]
  5. ZOLOFT [Concomitant]
  6. XANAX [Concomitant]
  7. AMEN [Concomitant]

REACTIONS (7)
  - ACTIVITIES OF DAILY LIVING IMPAIRED [None]
  - AFFECT LABILITY [None]
  - CONDITION AGGRAVATED [None]
  - DEMENTIA [None]
  - FAECAL INCONTINENCE [None]
  - INCOHERENT [None]
  - URINARY INCONTINENCE [None]
